FAERS Safety Report 17098705 (Version 1)
Quarter: 2019Q4

REPORT INFORMATION
  Report Type: Spontaneous
  Country: US (occurrence: US)
  Receive Date: 20191105
  Receipt Date: 20191105
  Transmission Date: 20200122
  Serious: Yes (Hospitalization)
  Sender: FDA-Public Use
  Company Number: None

PATIENT
  Sex: Female

DRUGS (1)
  1. CAPECITABINE 500 MG NOVADOZ PHARMACEUTICALS [Suspect]
     Active Substance: CAPECITABINE
     Indication: DRUG THERAPY
     Route: 048
     Dates: start: 20181031

REACTIONS (4)
  - Diarrhoea [None]
  - Hypotension [None]
  - Vomiting [None]
  - Dehydration [None]
